FAERS Safety Report 5678113-6 (Version None)
Quarter: 2008Q1

REPORT INFORMATION
  Report Type: 
  Country: None (occurrence: None)
  Receive Date: 20080319
  Receipt Date: 20080313
  Transmission Date: 20080703
  Serious: Yes (Other)
  Sender: FDA-Public Use
  Company Number: 18716

PATIENT
  Age: 53 Year
  Sex: Female

DRUGS (4)
  1. CYTARABINE [Suspect]
     Indication: ACUTE MYELOID LEUKAEMIA
     Dosage: 100 MG/M2 DAILY
  2. CYTARABINE [Suspect]
     Indication: ACUTE MYELOID LEUKAEMIA
     Dosage: 3 G/M2 BID
  3. IDARUBICIN HCL [Concomitant]
  4. TPN [Concomitant]

REACTIONS (10)
  - ABDOMINAL DISTENSION [None]
  - ACUTE MYELOID LEUKAEMIA RECURRENT [None]
  - ATAXIA [None]
  - DYSARTHRIA [None]
  - IMPAIRED GASTRIC EMPTYING [None]
  - NAUSEA [None]
  - NERVOUS SYSTEM DISORDER [None]
  - NEUROTOXICITY [None]
  - ORAL INTAKE REDUCED [None]
  - VOMITING [None]
